FAERS Safety Report 9973185 (Version 2)
Quarter: 2014Q1

REPORT INFORMATION
  Report Type: Report from Study
  Country: US (occurrence: US)
  Receive Date: 20140306
  Receipt Date: 20140306
  Transmission Date: 20141002
  Serious: No
  Sender: FDA-Public Use
  Company Number: US-ABBVIE-13P-163-1128797-00

PATIENT
  Age: 39 Year
  Sex: Female
  Weight: 85.35 kg

DRUGS (8)
  1. HUMIRA [Suspect]
     Indication: RHEUMATOID ARTHRITIS
     Dates: start: 20130717
  2. HUMIRA [Suspect]
     Indication: RHEUMATOID ARTHRITIS
     Dates: start: 201308
  3. PLAQUENIL [Concomitant]
     Indication: RHEUMATOID ARTHRITIS
  4. ATIVAN [Concomitant]
     Indication: ANXIETY
  5. CARAFATE [Concomitant]
     Indication: GASTRIC DISORDER
  6. CARAFATE [Concomitant]
     Indication: PROPHYLAXIS
  7. REMERON [Concomitant]
     Indication: DEPRESSION
  8. VITAMIN D [Concomitant]
     Indication: RHEUMATOID ARTHRITIS

REACTIONS (2)
  - Injection site pain [Recovered/Resolved]
  - Drug ineffective [Not Recovered/Not Resolved]
